FAERS Safety Report 18381822 (Version 2)
Quarter: 2020Q4

REPORT INFORMATION
  Report Type: Spontaneous
  Country: GB (occurrence: GB)
  Receive Date: 20201014
  Receipt Date: 20201029
  Transmission Date: 20210114
  Serious: Yes (Other)
  Sender: FDA-Public Use
  Company Number: GB-BAYER-2020-089630

PATIENT
  Age: 57 Year
  Sex: Male
  Weight: 74 kg

DRUGS (2)
  1. DOMPERIDONE [Concomitant]
     Active Substance: DOMPERIDONE
     Dosage: 30 MG, QD
     Route: 048
  2. XOFIGO [Suspect]
     Active Substance: RADIUM RA-223 DICHLORIDE
     Indication: PROSTATE CANCER METASTATIC
     Dosage: 55KBQ/KG
     Route: 042
     Dates: start: 20200511, end: 20201012

REACTIONS (6)
  - Bone pain [Not Recovered/Not Resolved]
  - Anaemia [Not Recovered/Not Resolved]
  - Nausea [Recovered/Resolved]
  - Off label use [None]
  - Prostate cancer metastatic [Not Recovered/Not Resolved]
  - Fatigue [Not Recovered/Not Resolved]

NARRATIVE: CASE EVENT DATE: 20200511
